FAERS Safety Report 10146479 (Version 1)
Quarter: 2014Q2

REPORT INFORMATION
  Report Type: Spontaneous
  Country: GB (occurrence: GB)
  Receive Date: 20140501
  Receipt Date: 20140501
  Transmission Date: 20141212
  Serious: Yes (Other)
  Sender: FDA-Public Use
  Company Number: GB-ASTRAZENECA-2014SE27691

PATIENT
  Age: 58 Year
  Sex: Female

DRUGS (1)
  1. XYLOCAINE WITH ADRENALINE [Suspect]
     Indication: LOCAL ANAESTHESIA
     Dosage: ADRENALINE (EPINEPHRINE) 12.5 MCG/ML, LIDOCAINE HYDROCHLORIDE 20 MG/ML
     Route: 004

REACTIONS (4)
  - Headache [Unknown]
  - Vision blurred [Unknown]
  - Loss of consciousness [Unknown]
  - Tremor [Unknown]
